FAERS Safety Report 7463107-0 (Version None)
Quarter: 2011Q1

REPORT INFORMATION
  Report Type: 
  Country: None (occurrence: None)
  Receive Date: 20110302
  Receipt Date: 20101011
  Transmission Date: 20110831
  Serious: Yes (Death)
  Sender: FDA-Public Use
  Company Number: 163-21880-10082169

PATIENT
  Age: 81 Year
  Sex: Female

DRUGS (5)
  1. PEPCID [Concomitant]
  2. RITALIN [Concomitant]
  3. REVLIMID [Suspect]
     Indication: MULTIPLE MYELOMA
     Dosage: 25 MG, QD X 21 DAYS, PO
     Route: 048
     Dates: start: 20100701, end: 20100101
  4. AMLODIPINE [Concomitant]
  5. BENZONATATE [Concomitant]

REACTIONS (1)
  - DEATH [None]
